FAERS Safety Report 9711830 (Version 1)
Quarter: 2013Q4

REPORT INFORMATION
  Report Type: Spontaneous
  Country: US (occurrence: None)
  Receive Date: 20131125
  Receipt Date: 20131125
  Transmission Date: 20140711
  Serious: No
  Sender: FDA-Public Use
  Company Number: None

PATIENT
  Age: 65 Year
  Sex: Male
  Weight: 88.91 kg

DRUGS (2)
  1. WELCHOL [Suspect]
     Indication: BLOOD CHOLESTEROL INCREASED
     Dosage: 3 PILLS TWICE DAILY TAKEN BY MOUTH
     Route: 048
     Dates: start: 20131028, end: 20131102
  2. WELCHOL [Suspect]
     Indication: BLOOD TRIGLYCERIDES INCREASED
     Dosage: 3 PILLS TWICE DAILY TAKEN BY MOUTH
     Route: 048
     Dates: start: 20131028, end: 20131102

REACTIONS (2)
  - Back pain [None]
  - Dysstasia [None]
